FAERS Safety Report 18978086 (Version 7)
Quarter: 2022Q4

REPORT INFORMATION
  Report Type: Report from Study
  Country: US (occurrence: US)
  Receive Date: 20210307
  Receipt Date: 20221110
  Transmission Date: 20230113
  Serious: No
  Sender: FDA-Public Use
  Company Number: NVSC2021US051771

PATIENT
  Sex: Female

DRUGS (2)
  1. KESIMPTA [Suspect]
     Active Substance: OFATUMUMAB
     Indication: Relapsing multiple sclerosis
     Dosage: UNK
     Route: 058
     Dates: start: 20210217
  2. KESIMPTA [Suspect]
     Active Substance: OFATUMUMAB
     Dosage: UNK
     Route: 065
     Dates: start: 20210224

REACTIONS (7)
  - Pain [Unknown]
  - Pyrexia [Unknown]
  - Chills [Unknown]
  - Back injury [Unknown]
  - Stress [Unknown]
  - Malaise [Unknown]
  - Headache [Not Recovered/Not Resolved]
